FAERS Safety Report 14249406 (Version 1)
Quarter: 2017Q4

REPORT INFORMATION
  Report Type: Spontaneous
  Country: MA (occurrence: MA)
  Receive Date: 20171204
  Receipt Date: 20171204
  Transmission Date: 20180321
  Serious: Yes (Other)
  Sender: FDA-Public Use
  Company Number: MA-MYLANLABS-2017M1075700

PATIENT
  Age: 7 Decade
  Sex: Female

DRUGS (1)
  1. CARBOPLATIN. [Suspect]
     Active Substance: CARBOPLATIN
     Indication: ADENOCARCINOMA GASTRIC
     Dosage: RECEIVED OVER 13 WEEKS
     Route: 065
     Dates: end: 200906

REACTIONS (1)
  - Sarcoidosis [Recovering/Resolving]
